FAERS Safety Report 9783337 (Version 5)
Quarter: 2015Q2

REPORT INFORMATION
  Report Type: Report from Study
  Country: JP (occurrence: JP)
  Receive Date: 20131226
  Receipt Date: 20150626
  Transmission Date: 20150821
  Serious: Yes (Hospitalization)
  Sender: FDA-Public Use
  Company Number: JP-UCBSA-106745

PATIENT
  Age: 65 Year
  Sex: Male
  Weight: 49 kg

DRUGS (22)
  1. PREDONINE [Concomitant]
     Active Substance: PREDNISOLONE\PREDNISOLONE ACETATE\PREDNISOLONE SODIUM SUCCINATE
     Dosage: DAILY DOSE:11 MG
     Route: 048
     Dates: start: 20130626, end: 20130910
  2. MAGMITT [Concomitant]
     Active Substance: MAGNESIUM OXIDE
     Dosage: DAILY DOSE :750 MG
     Route: 048
  3. AMARYL [Concomitant]
     Active Substance: GLIMEPIRIDE
     Dosage: DAILY DOSE:1 MG
     Route: 048
     Dates: start: 20130710, end: 20130723
  4. RIMATIL [Concomitant]
     Active Substance: BUCILLAMINE
     Dosage: DAILY DOSE :200 MG
     Route: 048
     Dates: end: 20130723
  5. CERTOLIZUMAB PEGOL RA [Suspect]
     Active Substance: CERTOLIZUMAB PEGOL
     Dosage: 200 MG, BIWEEKLY
     Route: 058
     Dates: start: 20130911
  6. FOLIAMIN [Concomitant]
     Active Substance: FOLIC ACID
     Dosage: DAILY DOSE :7.5 MG
     Route: 048
  7. VOGLIBOSE OD [Concomitant]
     Active Substance: VOGLIBOSE
     Dosage: DAILY DOSE:0.9 MG
     Route: 048
     Dates: end: 20130723
  8. GLUFAST [Concomitant]
     Active Substance: MITIGLINIDE
     Dosage: DAILY DOSE:30 MG
     Route: 048
     Dates: start: 20130626
  9. GLUFAST [Concomitant]
     Active Substance: MITIGLINIDE
     Dosage: DAILY DOSE:15 MG
     Route: 048
     Dates: start: 20130612, end: 20130625
  10. LANTUS [Concomitant]
     Active Substance: INSULIN GLARGINE
     Dosage: DAILY DOSE: 10 IU
     Route: 042
  11. PREDONINE [Concomitant]
     Active Substance: PREDNISOLONE\PREDNISOLONE ACETATE\PREDNISOLONE SODIUM SUCCINATE
     Dosage: DAILY DOSE :8 MG
     Route: 048
     Dates: start: 20130911
  12. CERTOLIZUMAB PEGOL RA [Suspect]
     Active Substance: CERTOLIZUMAB PEGOL
     Indication: RHEUMATOID ARTHRITIS
     Dosage: STRENGTH: 200 MG, SYRINGE, BI WEEKLY
     Route: 058
     Dates: start: 20130501, end: 20130529
  13. PREDONINE [Concomitant]
     Active Substance: PREDNISOLONE\PREDNISOLONE ACETATE\PREDNISOLONE SODIUM SUCCINATE
     Dosage: DAILY DOSE:13 MG
     Route: 048
     Dates: start: 20130515, end: 20130625
  14. JANUVIA [Concomitant]
     Active Substance: SITAGLIPTIN PHOSPHATE
     Dosage: DAILY DOSE :100 MG
     Route: 048
     Dates: start: 20130626
  15. METHYL SALICYLATE, L-MENTHOL, DL-CAMPHOR, AND GLYCYRRHETINIC ACID [Concomitant]
     Indication: ARTHRALGIA
     Dosage: 80 G
  16. LANSOPRAZOLE-OD [Concomitant]
     Active Substance: LANSOPRAZOLE
     Dosage: DAILY DOSE :30 MG
     Route: 048
  17. LANTUS [Concomitant]
     Active Substance: INSULIN GLARGINE
     Dosage: DAILY DOSE: 6 IU
     Route: 042
     Dates: start: 20130724, end: 20130910
  18. CERTOLIZUMAB PEGOL RA [Suspect]
     Active Substance: CERTOLIZUMAB PEGOL
     Dosage: STRENGTH: 200 MG, SYRINGE, BI WEEKLY
     Route: 058
     Dates: start: 20130612, end: 20130724
  19. RHEUMATREX [Concomitant]
     Active Substance: METHOTREXATE SODIUM
     Route: 048
  20. PREDONINE [Concomitant]
     Active Substance: PREDNISOLONE\PREDNISOLONE ACETATE\PREDNISOLONE SODIUM SUCCINATE
     Dosage: DAILY DOSE :15 MG
     Route: 048
     Dates: end: 20130514
  21. JANUVIA [Concomitant]
     Active Substance: SITAGLIPTIN PHOSPHATE
     Dosage: DAILY DOSE :50 MG
     Route: 048
     Dates: end: 20130625
  22. LANTUS [Concomitant]
     Active Substance: INSULIN GLARGINE
     Dosage: DAILY DOSE: 10 IU
     Route: 042
     Dates: start: 20130911

REACTIONS (5)
  - Cell marker increased [Not Recovered/Not Resolved]
  - Cystitis [Recovered/Resolved]
  - Arthralgia [Recovered/Resolved]
  - Renal abscess [Recovered/Resolved]
  - C-reactive protein increased [Not Recovered/Not Resolved]

NARRATIVE: CASE EVENT DATE: 2013
